FAERS Safety Report 8831369 (Version 1)
Quarter: 2012Q4

REPORT INFORMATION
  Report Type: Report from Study
  Country: DE (occurrence: DE)
  Receive Date: 20121009
  Receipt Date: 20121009
  Transmission Date: 20130627
  Serious: Yes (Hospitalization, Other)
  Sender: FDA-Public Use
  Company Number: DE-MERCK-1203USA01551

PATIENT
  Age: 79 Year
  Sex: Male
  Weight: 88 kg

DRUGS (18)
  1. BLINDED EZETIMIBE (+) SIMVASTATIN [Suspect]
     Indication: ACUTE CORONARY SYNDROME
     Dosage: UNK
     Route: 048
     Dates: start: 20080319, end: 20120308
  2. BLINDED PLACEBO [Suspect]
     Indication: ACUTE CORONARY SYNDROME
     Dosage: UNK
     Route: 048
     Dates: start: 20080319, end: 20120308
  3. BLINDED POST TRIAL THERAPY [Suspect]
     Indication: ACUTE CORONARY SYNDROME
     Dosage: UNK
     Route: 048
     Dates: start: 20080319, end: 20120308
  4. BLINDED PRE TRIAL THERAPY [Suspect]
     Indication: ACUTE CORONARY SYNDROME
     Dosage: UNK
     Route: 048
     Dates: start: 20080319, end: 20120308
  5. SIMVASTATIN [Suspect]
     Indication: ACUTE CORONARY SYNDROME
     Dosage: UNK
     Route: 048
     Dates: start: 20080319, end: 20120308
  6. BLINDED THERAPY [Suspect]
     Indication: ACUTE CORONARY SYNDROME
     Dosage: UNK
     Route: 048
     Dates: start: 20080319, end: 20120308
  7. ZOCOR [Suspect]
     Dosage: 40 mg, qd
     Route: 048
     Dates: start: 20100601, end: 20120307
  8. AMLODIPINE [Suspect]
     Dosage: 5 mg, qd
     Route: 048
     Dates: start: 20080319, end: 20120308
  9. RAMIPRIL [Concomitant]
     Dosage: 2.5 mg, qd
     Route: 048
     Dates: start: 20030318
  10. SAXAGLIPTIN [Concomitant]
     Dosage: 5 mg, qd
     Route: 048
     Dates: start: 20120101
  11. PREDNISOLONE [Concomitant]
     Dosage: 2 mg, qd
     Route: 048
     Dates: start: 20030421
  12. METOPROLOL [Concomitant]
     Dosage: 47.5 mg, qd
     Route: 048
     Dates: start: 20030425
  13. ASPIRIN [Concomitant]
     Dosage: 100 mg, qd
     Route: 048
     Dates: start: 20030425
  14. GLIMEPIRIDE [Concomitant]
     Dosage: 2 mg, qd
     Route: 048
     Dates: start: 20030301
  15. CALCIUM (UNSPECIFIED) [Concomitant]
     Route: 048
     Dates: start: 20080314
  16. VITAMIN D (UNSPECIFIED) [Concomitant]
     Route: 048
     Dates: start: 20080314
  17. HYDROCHLOROTHIAZIDE [Concomitant]
     Dosage: 20 mg, qd
     Route: 048
     Dates: start: 20080314
  18. ERGOCALCIFEROL [Concomitant]
     Dosage: UNK
     Dates: start: 20080314

REACTIONS (4)
  - Blood creatine phosphokinase increased [Recovered/Resolved]
  - Subclavian artery stenosis [Recovered/Resolved]
  - Renal cyst [Unknown]
  - Aspartate aminotransferase increased [None]
